FAERS Safety Report 14607396 (Version 1)
Quarter: 2018Q1

REPORT INFORMATION
  Report Type: Spontaneous
  Country: IN (occurrence: IN)
  Receive Date: 20180307
  Receipt Date: 20180307
  Transmission Date: 20180509
  Serious: Yes (Other)
  Sender: FDA-Public Use
  Company Number: IN-LUPIN PHARMACEUTICALS INC.-2018-01668

PATIENT
  Age: 55 Year
  Sex: Male

DRUGS (4)
  1. VORICONAZOLE. [Suspect]
     Active Substance: VORICONAZOLE
     Indication: PHAEHYPHOMYCOSIS
     Dosage: UNK
     Route: 048
  2. AMPHOTERICIN B. [Concomitant]
     Active Substance: AMPHOTERICIN B
     Indication: FUNGAL INFECTION
     Dosage: UNK
     Route: 042
  3. VORICONAZOLE. [Suspect]
     Active Substance: VORICONAZOLE
     Indication: PHAEHYPHOMYCOSIS
     Dosage: UNK
     Route: 042
  4. AMLODIPINE [Concomitant]
     Active Substance: AMLODIPINE BESYLATE
     Indication: HYPERTENSION
     Dosage: UNK
     Route: 065

REACTIONS (1)
  - Mucormycosis [Unknown]
